FAERS Safety Report 8549308-9 (Version None)
Quarter: 2012Q3

REPORT INFORMATION
  Report Type: 
  Country: None (occurrence: None)
  Receive Date: 20120730
  Receipt Date: 20120716
  Transmission Date: 20120928
  Serious: Yes (Hospitalization, Congenital Anomaly, Other)
  Sender: FDA-Public Use
  Company Number: DE-MYLANLABS-2012S1014371

PATIENT
  Age: 0 Year
  Sex: Male
  Weight: 2.72 kg

DRUGS (4)
  1. ACYCLOVIR [Concomitant]
     Dosage: EXACT TIME OF EXPOSURE UNKNOWN, PROBABLY JANUARY/FEBRUARY 2011
     Route: 064
  2. VENLAFAXINE [Suspect]
     Dosage: 150 [MG/D ]
     Route: 064
  3. LEVOTHYROXINE SODIUM [Concomitant]
     Dosage: 0-37.2 GW
     Route: 064
  4. VENLAFAXINE [Suspect]
     Route: 063

REACTIONS (4)
  - MATERNAL EXPOSURE DURING PREGNANCY [None]
  - EXPOSURE DURING BREAST FEEDING [None]
  - HYPOTHERMIA NEONATAL [None]
  - TALIPES [None]
